FAERS Safety Report 8145052-0 (Version None)
Quarter: 2012Q1

REPORT INFORMATION
  Report Type: 
  Country: None (occurrence: None)
  Receive Date: 20120103
  Receipt Date: 20111014
  Transmission Date: 20120608
  Serious: No
  Sender: FDA-Public Use
  Company Number: AE-2011-002337

PATIENT
  Age: 37 Year
  Sex: Female
  Weight: 90.7194 kg

DRUGS (5)
  1. SEROQUEL [Concomitant]
  2. PEGASYS [Concomitant]
  3. INCIVEK [Suspect]
     Dosage: 93.75 MG (750 MG, 1IN 8 D), ORAL
     Route: 048
     Dates: start: 20110923
  4. RIBAVIRIN [Concomitant]
  5. PAXIL [Concomitant]

REACTIONS (2)
  - NAUSEA [None]
  - VOMITING [None]
